FAERS Safety Report 6254235-6 (Version None)
Quarter: 2009Q2

REPORT INFORMATION
  Report Type: 
  Country: None (occurrence: None)
  Receive Date: 20090630
  Receipt Date: 20090630
  Transmission Date: 20091009
  Serious: Yes (Life-Threatening, Other)
  Sender: FDA-Public Use
  Company Number: None

PATIENT
  Sex: Male
  Weight: 65.7716 kg

DRUGS (2)
  1. HALDOL [Suspect]
     Indication: SCHIZOPHRENIA
     Dosage: 10MG TID
  2. LITHIUM 300MG [Suspect]
     Indication: BIPOLAR DISORDER
     Dosage: 300MG QID

REACTIONS (9)
  - APATHY [None]
  - BIPOLAR DISORDER [None]
  - CONVULSION [None]
  - LOSS OF CONSCIOUSNESS [None]
  - LOSS OF EMPLOYMENT [None]
  - MALAISE [None]
  - MENTAL DISORDER [None]
  - NAUSEA [None]
  - VICTIM OF ABUSE [None]
